FAERS Safety Report 8998968 (Version 3)
Quarter: 2013Q1

REPORT INFORMATION
  Report Type: Spontaneous
  Country: US (occurrence: US)
  Receive Date: 20130103
  Receipt Date: 20130119
  Transmission Date: 20140127
  Serious: No
  Sender: FDA-Public Use
  Company Number: US-009507513-1212USA010045

PATIENT
  Age: 55 Year
  Sex: Female

DRUGS (3)
  1. VICTRELIS [Suspect]
     Indication: HEPATITIS C
     Dosage: 200 MG, 3 TIMES DAILY
     Route: 048
     Dates: start: 20121010
  2. PEGASYS [Suspect]
     Dosage: 180 MICROGRAM, WEEKLY
     Route: 058
  3. RIBASPHERE [Suspect]
     Dosage: 400 MG, QAM

REACTIONS (1)
  - Fatigue [Unknown]
